FAERS Safety Report 12082381 (Version 1)
Quarter: 2016Q1

REPORT INFORMATION
  Report Type: Spontaneous
  Country: US (occurrence: US)
  Receive Date: 20160217
  Receipt Date: 20160217
  Transmission Date: 20160526
  Serious: No
  Sender: FDA-Public Use
  Company Number: US-ALEXION-A201600969

PATIENT
  Age: 65 Year
  Sex: Female
  Weight: 46.77 kg

DRUGS (2)
  1. STRENSIQ [Suspect]
     Active Substance: ASFOTASE ALFA
     Indication: HYPOPHOSPHATASIA
     Dosage: 94 MG, TIW
     Route: 058
     Dates: start: 20160209
  2. STRENSIQ [Suspect]
     Active Substance: ASFOTASE ALFA
     Indication: OFF LABEL USE

REACTIONS (3)
  - Wrong technique in product usage process [Recovered/Resolved]
  - Injection site pain [Recovered/Resolved]
  - Off label use [Unknown]

NARRATIVE: CASE EVENT DATE: 20160209
